FAERS Safety Report 4625712-6 (Version None)
Quarter: 2005Q1

REPORT INFORMATION
  Report Type: 
  Country: None (occurrence: None)
  Receive Date: 20050330
  Receipt Date: 20050322
  Transmission Date: 20050727
  Serious: Yes (Hospitalization)
  Sender: FDA-Public Use
  Company Number: 2005047702

PATIENT
  Age: 42 Year
  Sex: Male

DRUGS (5)
  1. LIPITOR [Suspect]
     Indication: ACUTE MYOCARDIAL INFARCTION
     Dosage: 80 MG (80 MG, 1 IN 1 D), ORAL
     Route: 048
     Dates: start: 20041201, end: 20050308
  2. METOPROLOL SUCCINATE [Concomitant]
  3. ALBYL-ENTEROSOLUBILE (ACETYLSALICYLIC ACID, MAGNESIUM OXIDE) [Concomitant]
  4. CLOPIDOGREL BISULFATE [Concomitant]
  5. DICLOFENAC SODIUM [Concomitant]

REACTIONS (5)
  - CHEST PAIN [None]
  - FEELING ABNORMAL [None]
  - MYOPATHY [None]
  - PYREXIA [None]
  - RHABDOMYOLYSIS [None]
